FAERS Safety Report 8613925-8 (Version None)
Quarter: 2012Q3

REPORT INFORMATION
  Report Type: 
  Country: None (occurrence: None)
  Receive Date: 20120823
  Receipt Date: 20120810
  Transmission Date: 20120928
  Serious: Yes (Hospitalization)
  Sender: FDA-Public Use
  Company Number: JP-MERCK-1206USA02101

PATIENT

DRUGS (5)
  1. FAMOTIDINE [Suspect]
     Indication: GASTRITIS
     Dosage: 20 MG, QD
     Route: 048
     Dates: start: 20120301, end: 20120524
  2. BUFFERIN [Suspect]
     Indication: CEREBRAL INFARCTION
     Dosage: 8 MG, QD
     Route: 048
     Dates: end: 20120524
  3. NORVASC [Suspect]
     Indication: HYPERTENSION
     Dosage: 5 MG, QD
     Route: 048
     Dates: end: 20120524
  4. OLMESARTAN MEDOXOMIL [Suspect]
     Indication: HYPERTENSION
     Dosage: 20 MG, QD
     Route: 048
     Dates: end: 20120524
  5. CRESTOR [Suspect]
     Indication: LIPIDS ABNORMAL
     Dosage: 2.5 MG, QD
     Route: 048
     Dates: end: 20120524

REACTIONS (1)
  - LIVER DISORDER [None]
